FAERS Safety Report 6253691-7 (Version None)
Quarter: 2009Q2

REPORT INFORMATION
  Report Type: 
  Country: None (occurrence: None)
  Receive Date: 20090630
  Receipt Date: 20090618
  Transmission Date: 20091009
  Serious: Yes (Life-Threatening)
  Sender: FDA-Public Use
  Company Number: 236764K09USA

PATIENT
  Age: 46 Year
  Sex: Male
  Weight: 66 kg

DRUGS (5)
  1. REBIF [Suspect]
     Indication: MULTIPLE SCLEROSIS
     Dosage: 44 MCG, 3 IN 1 WEEKS, SUBCUTANEOUS
     Route: 058
     Dates: start: 20081212
  2. PROZAC [Concomitant]
  3. TYLENOL [Concomitant]
  4. BACLOFEN [Concomitant]
  5. IBUPROFEN [Concomitant]

REACTIONS (1)
  - PNEUMONIA ASPIRATION [None]
